FAERS Safety Report 7098432-9 (Version None)
Quarter: 2010Q4

REPORT INFORMATION
  Report Type: 
  Country: None (occurrence: None)
  Receive Date: 20101112
  Receipt Date: 20101101
  Transmission Date: 20110411
  Serious: No
  Sender: FDA-Public Use
  Company Number: US-PFIZER INC-2010139512

PATIENT
  Sex: Female

DRUGS (1)
  1. CHLORPROPAMIDE [Suspect]

REACTIONS (3)
  - NAUSEA [None]
  - URTICARIA [None]
  - VOMITING [None]
